FAERS Safety Report 9154497 (Version 1)
Quarter: 2013Q1

REPORT INFORMATION
  Report Type: Spontaneous
  Country: US (occurrence: None)
  Receive Date: 20130206
  Receipt Date: 20130206
  Transmission Date: 20140127
  Serious: Yes (Death, Hospitalization)
  Sender: FDA-Public Use
  Company Number: DSA_58549_2012

PATIENT
  Sex: Female

DRUGS (1)
  1. XENAZINE 25 MG (NOT SPECIFIED) [Suspect]
     Indication: HUNTINGTON^S DISEASE
     Dosage: 1 TAB IN THE MORNING AND 1/2 TAB IN THE EVENING
     Route: 048
     Dates: start: 20090107

REACTIONS (1)
  - Pneumonia aspiration [None]
